FAERS Safety Report 25719360 (Version 1)
Quarter: 2025Q3

REPORT INFORMATION
  Report Type: Report from Study
  Country: JP (occurrence: JP)
  Receive Date: 20250824
  Receipt Date: 20250824
  Transmission Date: 20251021
  Serious: Yes (Death, Other)
  Sender: TAKEDA
  Company Number: JP-TAKEDA-2025TJP008390

PATIENT
  Sex: Female
  Weight: 71.8 kg

DRUGS (23)
  1. MARIBAVIR [Suspect]
     Active Substance: MARIBAVIR
     Indication: Cytomegalovirus infection
     Dates: start: 20240904, end: 20240916
  2. RUXOLITINIB PHOSPHATE [Concomitant]
     Active Substance: RUXOLITINIB PHOSPHATE
  3. MYCOPHENOLATE MOFETIL [Concomitant]
     Active Substance: MYCOPHENOLATE MOFETIL
     Dates: start: 20240907, end: 20240912
  4. NEO-MINOPHAGEN C [Concomitant]
     Active Substance: AMMONIUM GLYCYRRHIZATE
  5. POLARAMINE [Concomitant]
     Active Substance: DEXCHLORPHENIRAMINE MALEATE
  6. CARPERITIDE [Concomitant]
     Active Substance: CARPERITIDE
  7. ROMIPLOSTIM [Concomitant]
     Active Substance: ROMIPLOSTIM
  8. CRESEMBA [Concomitant]
     Active Substance: ISAVUCONAZONIUM SULFATE
  9. ATARAX [Concomitant]
     Active Substance: HYDROXYZINE HYDROCHLORIDE
  10. TEICOPLANIN [Concomitant]
     Active Substance: TEICOPLANIN
  11. OMEPRAZOLE [Concomitant]
     Active Substance: OMEPRAZOLE
  12. MEROPENEM [Concomitant]
     Active Substance: MEROPENEM
  13. PRIMPERAN [Concomitant]
     Active Substance: METOCLOPRAMIDE HYDROCHLORIDE
  14. DAPTOMYCIN [Concomitant]
     Active Substance: DAPTOMYCIN
  15. URSODIOL [Concomitant]
     Active Substance: URSODIOL
  16. ATOVAQUONE [Concomitant]
     Active Substance: ATOVAQUONE
  17. CIPROFLOXACIN [Concomitant]
     Active Substance: CIPROFLOXACIN
  18. NIFEDIPINE [Concomitant]
     Active Substance: NIFEDIPINE
  19. Choreito [Concomitant]
  20. AMENAMEVIR [Concomitant]
     Active Substance: AMENAMEVIR
  21. NOVOLIN R [Concomitant]
     Active Substance: INSULIN HUMAN
  22. SULFAMETHOXAZOLE\TRIMETHOPRIM [Concomitant]
     Active Substance: SULFAMETHOXAZOLE\TRIMETHOPRIM
  23. XOSPATA [Concomitant]
     Active Substance: GILTERITINIB

REACTIONS (1)
  - Multiple organ dysfunction syndrome [Fatal]

NARRATIVE: CASE EVENT DATE: 20240917
